FAERS Safety Report 10582208 (Version 3)
Quarter: 2014Q4

REPORT INFORMATION
  Report Type: Spontaneous
  Country: US (occurrence: US)
  Receive Date: 20141113
  Receipt Date: 20141216
  Transmission Date: 20150529
  Serious: Yes (Hospitalization)
  Sender: FDA-Public Use
  Company Number: US-PFIZER INC-2014288383

PATIENT
  Age: 61 Year
  Sex: Female

DRUGS (7)
  1. LYRICA [Suspect]
     Active Substance: PREGABALIN
     Indication: NEUROPATHY PERIPHERAL
  2. CELEBREX [Suspect]
     Active Substance: CELECOXIB
     Indication: PARAPARESIS
  3. LYRICA [Suspect]
     Active Substance: PREGABALIN
     Indication: ASTHENIA
     Dosage: 75 MG, 2X/DAY
  4. GABAPENTIN. [Concomitant]
     Active Substance: GABAPENTIN
     Dosage: 300 MG, UNK
     Dates: start: 20141202
  5. CELEBREX [Suspect]
     Active Substance: CELECOXIB
     Indication: ASTHENIA
     Dosage: 300 MG, 2X/DAY
  6. LYRICA [Suspect]
     Active Substance: PREGABALIN
     Indication: PARAPARESIS
  7. NORCO [Concomitant]
     Active Substance: ACETAMINOPHEN\HYDROCODONE BITARTRATE
     Dosage: HYDROCODONE BITARTRATE 5 MG, PARACETAMOL 325 MG

REACTIONS (1)
  - Fall [Recovering/Resolving]

NARRATIVE: CASE EVENT DATE: 20141019
